FAERS Safety Report 5827359-2 (Version None)
Quarter: 2008Q3

REPORT INFORMATION
  Report Type: 
  Country: None (occurrence: None)
  Receive Date: 20080730
  Receipt Date: 20080728
  Transmission Date: 20090109
  Serious: Yes (Life-Threatening, Other)
  Sender: FDA-Public Use
  Company Number: DE-BRISTOL-MYERS SQUIBB COMPANY-14279772

PATIENT
  Age: 42 Year
  Sex: Female

DRUGS (3)
  1. TAXOL [Suspect]
     Indication: BREAST CANCER METASTATIC
     Dosage: STARTED ON AUG07;THER.DUR:93 DAYS
     Route: 042
     Dates: start: 20070801, end: 20071101
  2. AVASTIN [Suspect]
     Indication: BREAST CANCER METASTATIC
     Dosage: STARTED ON 17AUG07;THERAPY DUR:85DAYS
     Route: 042
     Dates: start: 20070817, end: 20071109
  3. IBANDRONATE [Concomitant]
     Dates: start: 20070817, end: 20071228

REACTIONS (2)
  - JAUNDICE [None]
  - LIVER FUNCTION TEST ABNORMAL [None]
